FAERS Safety Report 4494137-9 (Version None)
Quarter: 2004Q4

REPORT INFORMATION
  Report Type: 
  Country: None (occurrence: None)
  Receive Date: 20041104
  Receipt Date: 20041104
  Transmission Date: 20050328
  Serious: Yes (Life-Threatening, Hospitalization)
  Sender: FDA-Public Use
  Company Number: None

PATIENT
  Age: 83 Year
  Sex: Female
  Weight: 85 kg

DRUGS (1)
  1. FARESTON [Suspect]
     Indication: BREAST CANCER
     Dosage: 60 MG QDAY PO
     Route: 048
     Dates: start: 20000326

REACTIONS (8)
  - ATRIOVENTRICULAR BLOCK [None]
  - CARDIAC ARREST [None]
  - DIZZINESS [None]
  - DYSPEPSIA [None]
  - DYSPNOEA [None]
  - FATIGUE [None]
  - HAEMOGLOBIN DECREASED [None]
  - NAUSEA [None]
